FAERS Safety Report 8322493-X (Version None)
Quarter: 2012Q2

REPORT INFORMATION
  Report Type: 
  Country: None (occurrence: None)
  Receive Date: 20120430
  Receipt Date: 20120424
  Transmission Date: 20120825
  Serious: Yes (Other)
  Sender: FDA-Public Use
  Company Number: DE-B.I. PHARMACEUTICALS,INC./RIDGEFIELD-2012-DE-01117DE

PATIENT
  Sex: Male
  Weight: 90 kg

DRUGS (7)
  1. LERCANIDIPINE [Suspect]
     Dosage: 14 ANZ
     Route: 048
     Dates: start: 20120424, end: 20120424
  2. TAMSULOSIN HCL [Suspect]
     Dosage: 7 ANZ
     Route: 048
     Dates: start: 20120424, end: 20120424
  3. AGGRENOX [Suspect]
     Dosage: 14 ANZ
     Route: 048
     Dates: start: 20120424, end: 20120424
  4. SIMVASTATIN [Suspect]
     Dosage: 7 ANZ
     Route: 048
     Dates: start: 20120424, end: 20120424
  5. PENTAERYTHRITOL TETRANITRATE [Suspect]
     Dosage: 14 ANZ
     Route: 048
     Dates: start: 20120424, end: 20120424
  6. METOPROLOL TARTRATE [Suspect]
     Dosage: 7 ANZ
     Route: 048
     Dates: start: 20120424, end: 20120424
  7. OMEPRAZOLE [Suspect]
     Dosage: 14 ANZ
     Route: 048
     Dates: start: 20120424, end: 20120424

REACTIONS (4)
  - DYSPNOEA [None]
  - MEDICATION ERROR [None]
  - HYPOTENSION [None]
  - ACCIDENTAL EXPOSURE [None]
